FAERS Safety Report 9347307 (Version 1)
Quarter: 2013Q2

REPORT INFORMATION
  Report Type: Report from Study
  Country: DE (occurrence: DE)
  Receive Date: 20130613
  Receipt Date: 20130613
  Transmission Date: 20140414
  Serious: Yes (Other)
  Sender: FDA-Public Use
  Company Number: DE-BAXTER-2013BAX022012

PATIENT
  Sex: Female

DRUGS (1)
  1. KIOVIG (1 G/10 ML) [Suspect]
     Indication: PRIMARY IMMUNODEFICIENCY SYNDROME
     Route: 058
     Dates: start: 2007

REACTIONS (2)
  - Cerebrovascular accident [Recovering/Resolving]
  - General physical health deterioration [None]
